FAERS Safety Report 5675498-1 (Version None)
Quarter: 2008Q2

REPORT INFORMATION
  Report Type: 
  Country: None (occurrence: None)
  Receive Date: 20080313
  Receipt Date: 20060405
  Transmission Date: 20081010
  Serious: Yes (Other)
  Sender: FDA-Public Use
  Company Number: AEDSFSSO20060405MED02

PATIENT
  Age: 78 Year
  Sex: Male

DRUGS (1)
  1. DERMA-SMOOTHE/FS [Suspect]
     Indication: PSORIASIS
     Dosage: ONCE DAILY

REACTIONS (1)
  - VISION BLURRED [None]
